FAERS Safety Report 18577014 (Version 1)
Quarter: 2020Q4

REPORT INFORMATION
  Report Type: Spontaneous
  Country: CN (occurrence: CN)
  Receive Date: 20201203
  Receipt Date: 20201203
  Transmission Date: 20210114
  Serious: Yes (Hospitalization)
  Sender: FDA-Public Use
  Company Number: CN-ELI_LILLY_AND_COMPANY-CN202012001072

PATIENT
  Age: 57 Year
  Sex: Female
  Weight: 60 kg

DRUGS (1)
  1. HUMALOG [Suspect]
     Active Substance: INSULIN LISPRO
     Indication: DIABETES MELLITUS
     Dosage: 18 U, TID
     Route: 058
     Dates: end: 20201127

REACTIONS (6)
  - Blood glucose increased [Not Recovered/Not Resolved]
  - Rheumatic disorder [Not Recovered/Not Resolved]
  - Disturbance in attention [Not Recovered/Not Resolved]
  - Anxiety [Not Recovered/Not Resolved]
  - Memory impairment [Not Recovered/Not Resolved]
  - Diabetic complication [Not Recovered/Not Resolved]

NARRATIVE: CASE EVENT DATE: 2019
